FAERS Safety Report 24890890 (Version 2)
Quarter: 2025Q2

REPORT INFORMATION
  Report Type: Spontaneous
  Country: DK (occurrence: DK)
  Receive Date: 20250127
  Receipt Date: 20250618
  Transmission Date: 20250717
  Serious: Yes (Death, Hospitalization, Other)
  Sender: MYLAN
  Company Number: DK-PFIZER INC-PV202500004725

PATIENT
  Age: 67 Year
  Sex: Male
  Weight: 63 kg

DRUGS (14)
  1. MYCOPHENOLATE MOFETIL [Suspect]
     Active Substance: MYCOPHENOLATE MOFETIL
     Indication: Drug-induced liver injury
     Dosage: 2 GRAM, QD,(1 G, 2X/DAY)
  2. MYCOPHENOLATE MOFETIL [Suspect]
     Active Substance: MYCOPHENOLATE MOFETIL
     Indication: Acute hepatic failure
  3. PEMETREXED [Suspect]
     Active Substance: PEMETREXED
     Indication: Lung cancer metastatic
  4. PEMETREXED [Suspect]
     Active Substance: PEMETREXED
  5. CARBOPLATIN [Suspect]
     Active Substance: CARBOPLATIN
     Indication: Lung cancer metastatic
  6. CARBOPLATIN [Suspect]
     Active Substance: CARBOPLATIN
  7. TACROLIMUS [Suspect]
     Active Substance: TACROLIMUS
     Indication: Drug-induced liver injury
     Dosage: 4 MILLIGRAM, QD,(2 MG, 2X/DAY)
  8. TACROLIMUS [Suspect]
     Active Substance: TACROLIMUS
     Indication: Acute hepatic failure
  9. PREDNISOLONE [Suspect]
     Active Substance: PREDNISOLONE
     Indication: Drug-induced liver injury
     Dosage: 50 MILLIGRAM, QD,(50 MG, DAILY)
  10. PREDNISOLONE [Suspect]
     Active Substance: PREDNISOLONE
     Indication: Acute hepatic failure
  11. PEMBROLIZUMAB [Suspect]
     Active Substance: PEMBROLIZUMAB
     Indication: Lung cancer metastatic
  12. PEMBROLIZUMAB [Suspect]
     Active Substance: PEMBROLIZUMAB
  13. METHYLPREDNISOLONE SODIUM SUCCINATE [Suspect]
     Active Substance: METHYLPREDNISOLONE SODIUM SUCCINATE
     Indication: Acute hepatic failure
     Dosage: 120 MILLIGRAM,QD,(120 MG, DAILY)
  14. METHYLPREDNISOLONE SODIUM SUCCINATE [Suspect]
     Active Substance: METHYLPREDNISOLONE SODIUM SUCCINATE
     Indication: Drug-induced liver injury

REACTIONS (7)
  - Acute hepatic failure [Fatal]
  - Hepatitis [Fatal]
  - Hepatic encephalopathy [Fatal]
  - Coma [Fatal]
  - Drug ineffective for unapproved indication [Fatal]
  - Off label use [Fatal]
  - Product use issue [Unknown]
